FAERS Safety Report 8312362-3 (Version None)
Quarter: 2012Q2

REPORT INFORMATION
  Report Type: 
  Country: None (occurrence: None)
  Receive Date: 20120425
  Receipt Date: 20120418
  Transmission Date: 20120825
  Serious: Yes (Other)
  Sender: FDA-Public Use
  Company Number: IL-AMGEN-ISRSP2012024518

PATIENT
  Age: 70 Year
  Sex: Male

DRUGS (8)
  1. MICROPIRIN [Concomitant]
     Dosage: UNK
  2. ESCITALOPRAM [Concomitant]
     Dosage: UNK
  3. ZOLPIDEM TARTRATE [Concomitant]
     Dosage: UNK
  4. FOLIC ACID [Concomitant]
     Dosage: UNK
  5. RIFAMPIN [Concomitant]
     Dosage: UNK
  6. NORMITEN [Concomitant]
     Dosage: UNK
  7. ALLORIL [Concomitant]
     Dosage: UNK
  8. ENBREL [Suspect]
     Indication: PSORIASIS
     Dosage: UNK
     Dates: start: 20110417

REACTIONS (1)
  - PHARYNGEAL OPERATION [None]
